FAERS Safety Report 19770143 (Version 2)
Quarter: 2021Q3

REPORT INFORMATION
  Report Type: Spontaneous
  Country: IN (occurrence: IN)
  Receive Date: 20210831
  Receipt Date: 20210831
  Transmission Date: 20211014
  Serious: Yes (Other)
  Sender: FDA-Public Use
  Company Number: IN-PFIZER INC-2018179846

PATIENT
  Age: 52 Year
  Sex: Female

DRUGS (1)
  1. CRIZALK [Suspect]
     Active Substance: CRIZOTINIB
     Indication: ALK GENE REARRANGEMENT ASSAY
     Dosage: 250 MG, 2X/DAY
     Route: 048
     Dates: start: 20160905

REACTIONS (3)
  - Ovarian cyst [Unknown]
  - COVID-19 pneumonia [Recovering/Resolving]
  - Fibrosis [Unknown]

NARRATIVE: CASE EVENT DATE: 20210507
